FAERS Safety Report 5443465-9 (Version None)
Quarter: 2007Q3

REPORT INFORMATION
  Report Type: 
  Country: None (occurrence: None)
  Receive Date: 20070905
  Receipt Date: 20070823
  Transmission Date: 20080115
  Serious: Yes (Congenital Anomaly)
  Sender: FDA-Public Use
  Company Number: US-MERCK-0708USA05865

PATIENT
  Sex: Female
  Weight: 4 kg

DRUGS (8)
  1. CRIXIVAN [Suspect]
     Route: 064
  2. SUSTIVA [Concomitant]
     Route: 064
  3. LAMIVUDINE [Concomitant]
     Route: 064
  4. NELFINAVIR MESYLATE [Concomitant]
     Route: 064
  5. NEVIRAPINE [Concomitant]
     Route: 064
  6. RITONAVIR [Concomitant]
     Route: 064
  7. ZIDOVUDINE [Concomitant]
     Route: 064
  8. INDINAVIR [Concomitant]
     Route: 064

REACTIONS (2)
  - DRUG EXPOSURE BEFORE PREGNANCY [None]
  - FALLOT'S TETRALOGY [None]
